FAERS Safety Report 4292808-0 (Version None)
Quarter: 2004Q1

REPORT INFORMATION
  Report Type: 
  Country: None (occurrence: None)
  Receive Date: 20040210
  Receipt Date: 20040127
  Transmission Date: 20041129
  Serious: Yes (Other)
  Sender: FDA-Public Use
  Company Number: APCDSS2003000191

PATIENT
  Age: 37 Year
  Sex: Male
  Weight: 51 kg

DRUGS (11)
  1. REMICADE (INFLIXIMAB, RECOMBINANT) LYOPHILIZED POWDER [Suspect]
     Indication: CROHN'S DISEASE
     Dosage: 250 MG, 1 IN 1 AS NECESSARY, INTRAVENOUS DRIP
     Route: 041
     Dates: start: 20020614, end: 20020614
  2. REMICADE (INFLIXIMAB, RECOMBINANT) LYOPHILIZED POWDER [Suspect]
     Indication: CROHN'S DISEASE
     Dosage: 250 MG, 1 IN 1 AS NECESSARY, INTRAVENOUS DRIP
     Route: 041
     Dates: start: 20020628, end: 20020628
  3. REMICADE (INFLIXIMAB, RECOMBINANT) LYOPHILIZED POWDER [Suspect]
     Indication: CROHN'S DISEASE
     Dosage: 250 MG, 1 IN 1 AS NECESSARY, INTRAVENOUS DRIP
     Route: 041
     Dates: start: 20020726, end: 20020726
  4. REMICADE (INFLIXIMAB, RECOMBINANT) LYOPHILIZED POWDER [Suspect]
     Indication: CROHN'S DISEASE
     Dosage: 250 MG, 1 IN 1 AS NECESSARY, INTRAVENOUS DRIP
     Route: 041
     Dates: start: 20021127, end: 20021127
  5. REMICADE (INFLIXIMAB, RECOMBINANT) LYOPHILIZED POWDER [Suspect]
     Indication: CROHN'S DISEASE
     Dosage: 250 MG, 1 IN 1 AS NECESSARY, INTRAVENOUS DRIP
     Route: 041
     Dates: start: 20021219, end: 20021219
  6. REMICADE (INFLIXIMAB, RECOMBINANT) LYOPOHILIZED POWDER [Suspect]
     Dosage: 5 MG/KG, 1 IN 1 AS NECESSARY, INTRAVENOUS DRIP
     Route: 041
     Dates: start: 20030514, end: 20030514
  7. REMICADE (INFLIXIMAB, RECOMBINANT) LYOPOHILIZED POWDER [Suspect]
     Dosage: 5 MG/KG, 1 IN 1 AS NECESSARY, INTRAVENOUS DRIP
     Route: 041
     Dates: start: 20030528, end: 20030528
  8. PREDNISOLONE [Suspect]
     Indication: CROHN'S DISEASE
     Dosage: 40 MG, IN 1 DAY, ORAL
     Route: 048
  9. OPIUM TINCTURE (OPIUM TINCTURE) [Concomitant]
  10. PENTASA [Concomitant]
  11. IMURAN [Concomitant]

REACTIONS (10)
  - ALOPECIA [None]
  - ARTHRALGIA [None]
  - DRUG INEFFECTIVE [None]
  - INFECTION [None]
  - MYALGIA [None]
  - OEDEMA [None]
  - PYREXIA [None]
  - SEPSIS [None]
  - WHITE BLOOD CELL COUNT DECREASED [None]
  - WHITE BLOOD CELL COUNT INCREASED [None]
